FAERS Safety Report 18617482 (Version 3)
Quarter: 2021Q1

REPORT INFORMATION
  Report Type: Spontaneous
  Country: FR (occurrence: FR)
  Receive Date: 20201215
  Receipt Date: 20210204
  Transmission Date: 20210419
  Serious: Yes (Death)
  Sender: FDA-Public Use
  Company Number: FR-JNJFOC-20201218905

PATIENT
  Age: 67 Year
  Sex: Male
  Weight: 88 kg

DRUGS (10)
  1. ROSUVASTATIN CALCIUM. [Concomitant]
     Active Substance: ROSUVASTATIN CALCIUM
     Indication: DYSLIPIDAEMIA
     Dates: start: 20141201, end: 20200704
  2. ZOPICLONE [Concomitant]
     Active Substance: ZOPICLONE
     Indication: INSOMNIA
     Dates: start: 201412, end: 20200704
  3. ERDAFITINIB. [Suspect]
     Active Substance: ERDAFITINIB
     Indication: TRANSITIONAL CELL CARCINOMA
     Route: 065
  4. ROSUVASTATIN CALCIUM. [Concomitant]
     Active Substance: ROSUVASTATIN CALCIUM
     Indication: DIALYSIS
  5. BISOPROLOL [Concomitant]
     Active Substance: BISOPROLOL
     Indication: HYPERTENSION
     Dates: start: 2017, end: 20200704
  6. NEURONTIN [Concomitant]
     Active Substance: GABAPENTIN
     Indication: NEUROPATHY PERIPHERAL
     Dates: start: 2017, end: 20200704
  7. SUCROFERRIC OXYHYDROXIDE [Concomitant]
     Active Substance: SUCROFERRIC OXYHYDROXIDE
  8. EUPRESSYL [URAPIDIL] [Concomitant]
     Active Substance: URAPIDIL
     Indication: HYPERTENSION
     Dates: start: 2017, end: 20200704
  9. PANTOPRAZOLE [Concomitant]
     Active Substance: PANTOPRAZOLE
     Dates: start: 2017, end: 20200704
  10. FENTANYL. [Concomitant]
     Active Substance: FENTANYL
     Indication: PAIN
     Dates: start: 2017, end: 20200704

REACTIONS (1)
  - Metastases to central nervous system [Fatal]
